APPROVED DRUG PRODUCT: ETODOLAC
Active Ingredient: ETODOLAC
Strength: 300MG
Dosage Form/Route: CAPSULE;ORAL
Application: A075078 | Product #002 | TE Code: AB
Applicant: TARO PHARMACEUTICAL INDUSTRIES LTD
Approved: Apr 30, 1998 | RLD: No | RS: Yes | Type: RX